FAERS Safety Report 12224492 (Version 3)
Quarter: 2016Q2

REPORT INFORMATION
  Report Type: Report from Study
  Country: ES (occurrence: ES)
  Receive Date: 20160331
  Receipt Date: 20160408
  Transmission Date: 20160815
  Serious: Yes (Hospitalization)
  Sender: FDA-Public Use
  Company Number: ES-ROCHE-1731874

PATIENT
  Age: 12 Year
  Sex: Female
  Weight: 33.2 kg

DRUGS (9)
  1. OSELTAMIVIR [Suspect]
     Active Substance: OSELTAMIVIR
     Indication: INFLUENZA
     Dosage: MOST RECENT DOSE OF OSELTAMIVIR: 60 MG ON 23/MAR/2016 AT 08.00
     Route: 065
     Dates: start: 20160317
  2. ZOVIRAX [Concomitant]
     Active Substance: ACYCLOVIR
     Route: 048
     Dates: start: 20160223
  3. METRONIDAZOLE. [Concomitant]
     Active Substance: METRONIDAZOLE
     Route: 048
     Dates: start: 20151222
  4. AZITROMICINA [Concomitant]
     Active Substance: AZITHROMYCIN DIHYDRATE
     Indication: COUGH
     Route: 065
     Dates: start: 20160323
  5. PARACETAMOL [Concomitant]
     Active Substance: ACETAMINOPHEN
     Indication: PYREXIA
     Route: 048
     Dates: start: 20160316, end: 20160317
  6. SEPTRIN [Concomitant]
     Active Substance: SULFAMETHOXAZOLE\TRIMETHOPRIM
     Indication: URINARY TRACT INFECTION
     Route: 042
     Dates: start: 20160323
  7. PARACETAMOL [Concomitant]
     Active Substance: ACETAMINOPHEN
     Route: 048
     Dates: start: 20160321, end: 20160321
  8. VALCYTE [Concomitant]
     Active Substance: VALGANCICLOVIR HYDROCHLORIDE
     Route: 048
     Dates: start: 20151222
  9. PARACETAMOL [Concomitant]
     Active Substance: ACETAMINOPHEN
     Route: 042
     Dates: start: 20160323

REACTIONS (1)
  - Influenza [Not Recovered/Not Resolved]

NARRATIVE: CASE EVENT DATE: 20160323
